FAERS Safety Report 5728709-8 (Version None)
Quarter: 2008Q2

REPORT INFORMATION
  Report Type: 
  Country: None (occurrence: None)
  Receive Date: 20080506
  Receipt Date: 20080423
  Transmission Date: 20081010
  Serious: Yes (Death, Other)
  Sender: FDA-Public Use
  Company Number: IT-BAYER-200816283GPV

PATIENT
  Age: 12 Year
  Sex: Male

DRUGS (18)
  1. FLUDARA [Suspect]
     Indication: ALLOGENIC BONE MARROW TRANSPLANTATION THERAPY
     Dosage: UNIT DOSE: 50 MG
     Route: 042
     Dates: start: 20071030, end: 20071104
  2. THYMOGLOBULIN [Suspect]
     Indication: ALLOGENIC BONE MARROW TRANSPLANTATION THERAPY
     Dosage: UNIT DOSE: 100 MG
     Route: 042
     Dates: start: 20071102, end: 20071104
  3. TREOSULFAN INJECTION [Suspect]
     Indication: ALLOGENIC BONE MARROW TRANSPLANTATION THERAPY
     Route: 042
     Dates: start: 20071031, end: 20071102
  4. FLUCONAZOLE [Concomitant]
     Indication: ANTIFUNGAL PROPHYLAXIS
     Route: 042
     Dates: start: 20071029, end: 20071111
  5. VALPROATE SODIUM [Concomitant]
     Indication: CONVULSION PROPHYLAXIS
     Dosage: UNIT DOSE: 150 MG
     Route: 042
     Dates: start: 20071029, end: 20071118
  6. ACYCLOVIR [Concomitant]
     Indication: ANTIVIRAL PROPHYLAXIS
     Dosage: TOTAL DAILY DOSE: 1950 MG
     Route: 042
     Dates: start: 20071031, end: 20071119
  7. FUROSEMIDE [Concomitant]
     Indication: CAPILLARY LEAK SYNDROME
     Dosage: UNIT DOSE: 20 MG
     Route: 042
     Dates: start: 20071104, end: 20071128
  8. CYCLOSPORINE [Concomitant]
     Indication: PROPHYLAXIS AGAINST GRAFT VERSUS HOST DISEASE
     Route: 042
     Dates: start: 20071030, end: 20071118
  9. CYCLOSPORINE [Concomitant]
     Route: 042
  10. AMIKACIN SULPHATE [Concomitant]
     Indication: BRONCHOPNEUMONIA
     Route: 042
     Dates: start: 20071110, end: 20071118
  11. CEFTAZIDIME PENTAHYDRATE [Concomitant]
     Indication: BRONCHOPNEUMONIA
     Route: 042
     Dates: start: 20071110, end: 20071118
  12. VANCOMYCIN [Concomitant]
     Indication: BRONCHOPNEUMONIA
     Route: 042
     Dates: start: 20071111, end: 20071116
  13. METHYLPREDNISOLONE [Concomitant]
     Indication: DRUG USE FOR UNKNOWN INDICATION
     Route: 042
     Dates: start: 20071111, end: 20071112
  14. DEFIBROTIDE [Concomitant]
     Indication: HEPATIC FAILURE
     Dosage: UNIT DOSE: 600 MG
     Route: 042
     Dates: start: 20071118, end: 20071127
  15. AMBISOME [Concomitant]
     Indication: BRONCHOPNEUMONIA
     Route: 042
     Dates: start: 20071111, end: 20071119
  16. METHOTREXATE [Concomitant]
     Indication: PROPHYLAXIS AGAINST GRAFT VERSUS HOST DISEASE
  17. METHOTREXATE [Concomitant]
  18. GLOBULIN ANTITHYMOCYTES [Concomitant]
     Indication: PROPHYLAXIS AGAINST GRAFT VERSUS HOST DISEASE

REACTIONS (5)
  - APLASIA [None]
  - BRONCHOPNEUMONIA [None]
  - CAPILLARY LEAK SYNDROME [None]
  - MULTI-ORGAN FAILURE [None]
  - VENOOCCLUSIVE LIVER DISEASE [None]
